FAERS Safety Report 7618549-7 (Version None)
Quarter: 2011Q3

REPORT INFORMATION
  Report Type: 
  Country: None (occurrence: None)
  Receive Date: 20110718
  Receipt Date: 20110712
  Transmission Date: 20111222
  Serious: Yes (Other)
  Sender: FDA-Public Use
  Company Number: CHPA2011US09171

PATIENT
  Age: 32 Year
  Sex: Male

DRUGS (1)
  1. EXCEDRIN UNKNOWN [Suspect]
     Indication: INFLAMMATION
     Dosage: 2 DF, UNK
     Route: 048
     Dates: start: 20110711, end: 20110711

REACTIONS (4)
  - OFF LABEL USE [None]
  - DYSPEPSIA [None]
  - CHEST PAIN [None]
  - HAEMATEMESIS [None]
